FAERS Safety Report 8604612-0 (Version None)
Quarter: 2012Q3

REPORT INFORMATION
  Report Type: 
  Country: None (occurrence: None)
  Receive Date: 20120820
  Receipt Date: 20120813
  Transmission Date: 20120928
  Serious: Yes (Other)
  Sender: FDA-Public Use
  Company Number: PHHY2012FR070990

PATIENT
  Age: 38 Year
  Sex: Male

DRUGS (2)
  1. CLOZAPINE [Suspect]
     Indication: SCHIZOPHRENIA
     Dosage: 75 MG /DAY
     Route: 048
     Dates: start: 20120621
  2. CLOZAPINE [Suspect]
     Dosage: 200 MG/DAY ( INCREMENTS OF 25 MG TO REACH 200 MG DAILY)
     Route: 048
     Dates: end: 20120731

REACTIONS (4)
  - AGRANULOCYTOSIS [None]
  - LUNG DISORDER [None]
  - ANAEMIA [None]
  - COLITIS [None]
